FAERS Safety Report 8274953-8 (Version None)
Quarter: 2012Q1

REPORT INFORMATION
  Report Type: 
  Country: None (occurrence: None)
  Receive Date: 20120309
  Receipt Date: 20111114
  Transmission Date: 20120608
  Serious: Yes (Hospitalization)
  Sender: FDA-Public Use
  Company Number: TH-2011-00488

PATIENT
  Sex: Male

DRUGS (3)
  1. KETOROLAC TROMETHAMINE [Suspect]
  2. ANTI-RETROVIRAL [Concomitant]
  3. EGRIFTA [Suspect]
     Indication: LIPODYSTROPHY ACQUIRED
     Dosage: 1 IN 1 D, SUBCUTANEOUS
     Route: 058
     Dates: start: 20110101, end: 20111101

REACTIONS (4)
  - RENAL FAILURE ACUTE [None]
  - ABDOMINAL PAIN [None]
  - HYPOKALAEMIA [None]
  - RENAL TUBULAR NECROSIS [None]
